FAERS Safety Report 10283197 (Version 4)
Quarter: 2014Q4

REPORT INFORMATION
  Report Type: Report from Study
  Country: CA (occurrence: CA)
  Receive Date: 20140708
  Receipt Date: 20141022
  Transmission Date: 20150528
  Serious: Yes (Other)
  Sender: FDA-Public Use
  Company Number: PHHY2014CA081742

PATIENT
  Sex: Male

DRUGS (1)
  1. EXJADE [Suspect]
     Active Substance: DEFERASIROX
     Indication: MYELODYSPLASTIC SYNDROME
     Dosage: 500 MG, QD
     Route: 048
     Dates: start: 20140109, end: 20140915

REACTIONS (6)
  - Asthenia [Unknown]
  - Productive cough [Unknown]
  - Gait disturbance [Unknown]
  - Cough [Unknown]
  - Constipation [Unknown]
  - Terminal state [Unknown]
